FAERS Safety Report 5663136-3 (Version None)
Quarter: 2008Q1

REPORT INFORMATION
  Report Type: 
  Country: None (occurrence: None)
  Receive Date: 20080313
  Receipt Date: 20080310
  Transmission Date: 20080703
  Serious: Yes (Hospitalization)
  Sender: FDA-Public Use
  Company Number: B0511812A

PATIENT
  Age: 53 Year
  Sex: Female
  Weight: 87.5 kg

DRUGS (3)
  1. TOPOTECAN [Suspect]
     Indication: NEOPLASM MALIGNANT
     Dosage: 1.3MG PER DAY
     Route: 042
     Dates: start: 20080213
  2. CARBOPLATIN [Suspect]
     Indication: NEOPLASM MALIGNANT
     Dosage: 395MG PER DAY
     Route: 042
     Dates: start: 20080215
  3. L-THYROXIN [Concomitant]
     Indication: THYROID DISORDER
     Route: 048

REACTIONS (1)
  - CEREBROVASCULAR ACCIDENT [None]
